FAERS Safety Report 25077199 (Version 1)
Quarter: 2025Q1

REPORT INFORMATION
  Report Type: Spontaneous
  Country: ES (occurrence: ES)
  Receive Date: 20250314
  Receipt Date: 20250314
  Transmission Date: 20250408
  Serious: Yes (Hospitalization, Other)
  Sender: AUROBINDO
  Company Number: ES-AEMPS-1640404

PATIENT
  Age: 85 Year
  Sex: Female

DRUGS (5)
  1. SERTRALINE [Suspect]
     Active Substance: SERTRALINE HYDROCHLORIDE
     Indication: Depression
     Dosage: 100 MILLIGRAM, ONCE A DAY
     Route: 048
     Dates: start: 20250214, end: 20250218
  2. Edunix [Concomitant]
     Indication: Pain
     Route: 048
     Dates: start: 20241217
  3. MORPHINE [Concomitant]
     Active Substance: MORPHINE
     Indication: Product used for unknown indication
     Route: 065
     Dates: start: 20240617
  4. OMEPRAZOLE [Concomitant]
     Active Substance: OMEPRAZOLE
     Indication: Product used for unknown indication
     Route: 065
     Dates: start: 20230111
  5. GABAPENTIN [Concomitant]
     Active Substance: GABAPENTIN
     Indication: Product used for unknown indication
     Route: 048
     Dates: start: 20180426

REACTIONS (1)
  - Inappropriate antidiuretic hormone secretion [Recovering/Resolving]

NARRATIVE: CASE EVENT DATE: 20250219
